FAERS Safety Report 5760211-X (Version None)
Quarter: 2008Q2

REPORT INFORMATION
  Report Type: 
  Country: None (occurrence: None)
  Receive Date: 20080602
  Receipt Date: 20080528
  Transmission Date: 20081010
  Serious: Yes (Life-Threatening)
  Sender: FDA-Public Use
  Company Number: 2007SP024792

PATIENT
  Age: 74 Year
  Sex: Female
  Weight: 48 kg

DRUGS (12)
  1. TEMODAL [Suspect]
     Indication: ANAPLASTIC ASTROCYTOMA
     Dosage: 150, 100 MG/M2, QD, PO
     Route: 048
     Dates: start: 20070328, end: 20070401
  2. TEMODAL [Suspect]
     Indication: ANAPLASTIC ASTROCYTOMA
     Dosage: 150, 100 MG/M2, QD, PO
     Route: 048
     Dates: start: 20070425, end: 20070429
  3. TEMODAL [Suspect]
     Indication: ANAPLASTIC ASTROCYTOMA
     Dosage: 150, 100 MG/M2, QD, PO
     Route: 048
     Dates: start: 20070523, end: 20070527
  4. TEMODAL [Suspect]
     Indication: ANAPLASTIC ASTROCYTOMA
     Dosage: 150, 100 MG/M2, QD, PO
     Route: 048
     Dates: start: 20070620, end: 20070624
  5. TEMODAL [Suspect]
     Indication: ANAPLASTIC ASTROCYTOMA
     Dosage: 150, 100 MG/M2, QD, PO
     Route: 048
     Dates: start: 20070718, end: 20070722
  6. EXCEGRAN [Concomitant]
  7. RABEPRAZOLE SODIUM [Concomitant]
  8. PREDNISOLONE [Concomitant]
  9. DEPAS [Concomitant]
  10. DOGMATYL [Concomitant]
  11. NASEA OD [Concomitant]
  12. BACTAR [Concomitant]

REACTIONS (2)
  - BRAIN NEOPLASM [None]
  - NAUSEA [None]
